FAERS Safety Report 10619275 (Version 4)
Quarter: 2019Q1

REPORT INFORMATION
  Report Type: Report from Study
  Country: US (occurrence: US)
  Receive Date: 20141202
  Receipt Date: 20190308
  Transmission Date: 20190417
  Serious: Yes (Other)
  Sender: FDA-Public Use
  Company Number: US-SA-2014SA028359

PATIENT
  Age: 54 Year
  Sex: Female

DRUGS (3)
  1. TERIFLUNOMIDE. [Suspect]
     Active Substance: TERIFLUNOMIDE
     Indication: MULTIPLE SCLEROSIS
     Dosage: 14 MG,QD
     Route: 048
     Dates: start: 20140215
  2. TERIFLUNOMIDE. [Suspect]
     Active Substance: TERIFLUNOMIDE
     Dosage: 7 MG, BID
     Route: 048
     Dates: start: 20181210
  3. BACLOFEN. [Concomitant]
     Active Substance: BACLOFEN
     Dosage: UNK

REACTIONS (21)
  - Gait disturbance [Recovered/Resolved]
  - Depression [Recovered/Resolved]
  - Respiratory disorder [Not Recovered/Not Resolved]
  - Hypoaesthesia [Recovered/Resolved]
  - Influenza like illness [Unknown]
  - Cervical spinal stenosis [Unknown]
  - Suicidal behaviour [Recovered/Resolved]
  - Sinus disorder [Not Recovered/Not Resolved]
  - Crying [Recovered/Resolved]
  - Neuropathy peripheral [Unknown]
  - Feeling cold [Unknown]
  - Abdominal pain upper [Unknown]
  - Peroneal nerve palsy [Unknown]
  - Dysgeusia [Unknown]
  - Laryngitis [Not Recovered/Not Resolved]
  - Anger [Recovered/Resolved]
  - Fatigue [Unknown]
  - Product use issue [Unknown]
  - Cough [Not Recovered/Not Resolved]
  - Hot flush [Unknown]
  - Muscle spasms [Unknown]

NARRATIVE: CASE EVENT DATE: 2014
